FAERS Safety Report 7097807-1 (Version None)
Quarter: 2010Q4

REPORT INFORMATION
  Report Type: 
  Country: None (occurrence: None)
  Receive Date: 20101112
  Receipt Date: 20101111
  Transmission Date: 20110411
  Serious: Yes (Death, Life-Threatening, Hospitalization, Other)
  Sender: FDA-Public Use
  Company Number: PHHO2009DE06209

PATIENT
  Sex: Female
  Weight: 59.5 kg

DRUGS (3)
  1. CERTICAN [Suspect]
     Indication: HEART TRANSPLANT
     Dosage: 0.75 MG, BID
     Route: 048
     Dates: start: 20090427, end: 20090625
  2. NEORAL [Suspect]
     Indication: HEART TRANSPLANT
     Dosage: 100 MG, BID
     Route: 048
     Dates: end: 20090612
  3. NEORAL [Suspect]
     Dosage: 25 MG, BID
     Route: 048
     Dates: start: 20090612

REACTIONS (29)
  - ALANINE AMINOTRANSFERASE INCREASED [None]
  - ANGIOPATHY [None]
  - ARTERIOSCLEROSIS [None]
  - CARDIAC CIRRHOSIS [None]
  - CARDIAC FAILURE [None]
  - CARDIOVASCULAR INSUFFICIENCY [None]
  - CEREBRAL ISCHAEMIA [None]
  - CEREBROVASCULAR ACCIDENT [None]
  - CHOLESTASIS [None]
  - COMA [None]
  - CONTINUOUS HAEMODIAFILTRATION [None]
  - CORONARY ARTERY DISEASE [None]
  - HEART TRANSPLANT REJECTION [None]
  - HEMIPLEGIA [None]
  - ILEUS PARALYTIC [None]
  - INTESTINAL ISCHAEMIA [None]
  - LEFT VENTRICULAR HYPERTROPHY [None]
  - LIVER DISORDER [None]
  - LYMPHOCYTIC INFILTRATION [None]
  - MOTOR DYSFUNCTION [None]
  - MULTI-ORGAN FAILURE [None]
  - MYOCARDIAL INFARCTION [None]
  - RENAL FAILURE [None]
  - SPLEEN CONGESTION [None]
  - STATUS EPILEPTICUS [None]
  - SUDDEN CARDIAC DEATH [None]
  - SUPERINFECTION BACTERIAL [None]
  - SYSTEMIC INFLAMMATORY RESPONSE SYNDROME [None]
  - VENTRICULAR FIBRILLATION [None]
